FAERS Safety Report 7389363-5 (Version None)
Quarter: 2011Q2

REPORT INFORMATION
  Report Type: 
  Country: None (occurrence: None)
  Receive Date: 20110401
  Receipt Date: 20110321
  Transmission Date: 20111010
  Serious: Yes (Hospitalization)
  Sender: FDA-Public Use
  Company Number: B0707079A

PATIENT
  Sex: Female

DRUGS (24)
  1. ONDANSETRON [Suspect]
     Indication: PREMEDICATION
     Dosage: 8MG PER DAY
     Route: 048
     Dates: start: 20101207, end: 20101207
  2. CREON [Concomitant]
     Route: 065
  3. BUDESONIDE [Concomitant]
     Route: 065
  4. FLUOROURACIL [Suspect]
     Dosage: 1INJ THREE TIMES PER DAY
     Route: 042
     Dates: start: 20101207, end: 20101208
  5. METEOSPASMYL [Concomitant]
     Route: 065
     Dates: end: 20101209
  6. LEXOMIL [Concomitant]
     Route: 065
     Dates: end: 20101209
  7. ELOXATIN [Suspect]
     Dosage: 92MG SINGLE DOSE
     Route: 042
     Dates: start: 20101207, end: 20101207
  8. DURAGESIC-100 [Suspect]
     Route: 062
     Dates: start: 20101207, end: 20101215
  9. URSOLVAN [Concomitant]
     Route: 065
     Dates: end: 20101209
  10. FUNGIZONE [Concomitant]
     Route: 065
     Dates: end: 20101209
  11. LOXEN [Concomitant]
     Route: 065
     Dates: end: 20101209
  12. INIPOMP [Concomitant]
     Route: 065
     Dates: end: 20101209
  13. TRANXENE [Concomitant]
     Route: 065
     Dates: end: 20101209
  14. LANTUS [Concomitant]
     Route: 065
  15. FORADIL [Concomitant]
     Route: 065
  16. PREVISCAN [Suspect]
     Dosage: 10MG PER DAY
     Route: 048
     Dates: start: 20101207, end: 20101209
  17. NOCTRAN [Concomitant]
     Route: 065
     Dates: end: 20101209
  18. ALDALIX [Concomitant]
     Route: 065
  19. DAFALGAN [Concomitant]
     Route: 065
     Dates: end: 20101209
  20. SODIUM BICARBONATE [Concomitant]
     Route: 065
     Dates: end: 20101209
  21. SPIRIVA [Concomitant]
     Route: 065
  22. ZOPHREN [Suspect]
     Indication: PREMEDICATION
     Route: 048
     Dates: start: 20101207, end: 20101209
  23. CALCIUM LEVOFOLINATE [Concomitant]
     Dosage: 215MG CYCLIC
     Route: 042
     Dates: start: 20101207, end: 20101207
  24. SOLUPRED [Concomitant]
     Route: 065
     Dates: end: 20101209

REACTIONS (16)
  - ANXIETY [None]
  - URINARY INCONTINENCE [None]
  - COMA SCALE ABNORMAL [None]
  - CEREBROVASCULAR ACCIDENT [None]
  - GRAND MAL CONVULSION [None]
  - PARAESTHESIA ORAL [None]
  - HYPERTENSIVE CRISIS [None]
  - ASPIRATION [None]
  - AGITATION [None]
  - VOMITING [None]
  - DISORIENTATION [None]
  - ABDOMINAL DISCOMFORT [None]
  - HEADACHE [None]
  - AGGRESSION [None]
  - CONFUSIONAL STATE [None]
  - SPONTANEOUS HAEMATOMA [None]
